FAERS Safety Report 10581567 (Version 2)
Quarter: 2016Q1

REPORT INFORMATION
  Report Type: Spontaneous
  Country: AT (occurrence: AT)
  Receive Date: 20141113
  Receipt Date: 20160213
  Transmission Date: 20160525
  Serious: Yes (Death, Other)
  Sender: FDA-Public Use
  Company Number: AT-BRISTOL-MYERS SQUIBB COMPANY-21556394

PATIENT
  Age: 33 Year
  Sex: Female

DRUGS (6)
  1. PACLITAXEL. [Suspect]
     Active Substance: PACLITAXEL
     Indication: METASTATIC MALIGNANT MELANOMA
     Dosage: UNK
     Route: 065
     Dates: start: 200912
  2. BEVACIZUMAB [Suspect]
     Active Substance: BEVACIZUMAB
     Indication: METASTATIC MALIGNANT MELANOMA
     Dosage: 1DF=15MG/KG/DAY  10MG/KG
     Route: 065
     Dates: start: 200902
  3. CAPECITABINE. [Suspect]
     Active Substance: CAPECITABINE
     Indication: METASTATIC MALIGNANT MELANOMA
     Dosage: 1DF=3000MG/DAY  500MG BID
     Route: 065
     Dates: start: 200902
  4. LAPATINIB [Concomitant]
     Active Substance: LAPATINIB
     Indication: METASTATIC MALIGNANT MELANOMA
     Route: 065
  5. CARBOPLATIN. [Suspect]
     Active Substance: CARBOPLATIN
     Indication: METASTATIC MALIGNANT MELANOMA
     Dosage: UNK
     Route: 065
     Dates: start: 200912
  6. CELECOXIB. [Concomitant]
     Active Substance: CELECOXIB
     Indication: METASTATIC MALIGNANT MELANOMA
     Route: 065

REACTIONS (2)
  - Product use issue [Unknown]
  - Metastatic malignant melanoma [Fatal]
